FAERS Safety Report 19567199 (Version 19)
Quarter: 2021Q4

REPORT INFORMATION
  Report Type: Report from Study
  Country: CN (occurrence: None)
  Receive Date: 20210715
  Receipt Date: 20211227
  Transmission Date: 20220304
  Serious: Yes (Life-Threatening, Hospitalization)
  Sender: FDA-Public Use
  Company Number: CN-ROCHE-2868540

PATIENT
  Age: 50 Year
  Sex: Male
  Weight: 61.8 kg

DRUGS (99)
  1. GLOFITAMAB [Suspect]
     Active Substance: GLOFITAMAB
     Indication: Diffuse large B-cell lymphoma
     Dosage: START DATE OF MOST RECENT DOSE OF STUDY DRUG PRIOR TO AE11/JUN/2021 AND START DATE OF MOST RECENT DO
     Route: 042
     Dates: start: 20210611
  2. OBINUTUZUMAB [Suspect]
     Active Substance: OBINUTUZUMAB
     Indication: Diffuse large B-cell lymphoma
     Dosage: START DATE OF MOST RECENT DOSE OF STUDY DRUG PRIOR TO SAE 04/JUN/2021?DOSE LAST STUDY DRUG ADMIN PRI
     Route: 042
     Dates: start: 20210604
  3. TOCILIZUMAB [Suspect]
     Active Substance: TOCILIZUMAB
     Indication: Diffuse large B-cell lymphoma
     Dosage: START DATE OF MOST RECENT DOSE OF STUDY DRUG PRIOR TO SAE 09/JUL/2021?DOSE LAST STUDY DRUG ADMIN PRI
     Route: 042
     Dates: start: 20210709
  4. METHYLPREDNISOLONE [Concomitant]
     Active Substance: METHYLPREDNISOLONE
     Indication: Premedication
     Route: 042
     Dates: start: 20210611, end: 20210611
  5. METHYLPREDNISOLONE [Concomitant]
     Active Substance: METHYLPREDNISOLONE
     Route: 042
     Dates: start: 20210708, end: 20210708
  6. METHYLPREDNISOLONE [Concomitant]
     Active Substance: METHYLPREDNISOLONE
     Route: 042
     Dates: start: 20210604, end: 20210604
  7. DIPHENHYDRAMINE [Concomitant]
     Active Substance: DIPHENHYDRAMINE
     Indication: Hypersensitivity
     Route: 030
     Dates: start: 20210611, end: 20210611
  8. DIPHENHYDRAMINE [Concomitant]
     Active Substance: DIPHENHYDRAMINE
     Indication: Infusion related reaction
     Route: 042
     Dates: start: 20210612, end: 20210612
  9. DIPHENHYDRAMINE [Concomitant]
     Active Substance: DIPHENHYDRAMINE
     Indication: Premedication
     Route: 042
     Dates: start: 20210708, end: 20210708
  10. DIPHENHYDRAMINE [Concomitant]
     Active Substance: DIPHENHYDRAMINE
     Route: 030
     Dates: start: 20210729, end: 20210730
  11. DIPHENHYDRAMINE [Concomitant]
     Active Substance: DIPHENHYDRAMINE
     Route: 030
     Dates: start: 20210604, end: 20210604
  12. EPRAZOLE [OMEPRAZOLE] [Concomitant]
     Route: 042
     Dates: start: 20210611, end: 20210611
  13. EPRAZOLE [OMEPRAZOLE] [Concomitant]
     Route: 048
     Dates: start: 20210709, end: 20210709
  14. POTASSIUM CHLORIDE [Concomitant]
     Active Substance: POTASSIUM CHLORIDE
     Indication: Mineral supplementation
     Route: 042
     Dates: start: 20210612, end: 20210615
  15. POTASSIUM CHLORIDE [Concomitant]
     Active Substance: POTASSIUM CHLORIDE
     Route: 042
     Dates: start: 20210709, end: 20210806
  16. POTASSIUM [Concomitant]
     Active Substance: POTASSIUM
     Route: 042
     Dates: start: 20210612, end: 20210615
  17. DEXAMETHASONE [Concomitant]
     Active Substance: DEXAMETHASONE
     Indication: Hypersensitivity
     Route: 042
     Dates: start: 20210612, end: 20210615
  18. DEXAMETHASONE [Concomitant]
     Active Substance: DEXAMETHASONE
     Indication: Infusion related reaction
     Route: 042
     Dates: start: 20210709, end: 20210712
  19. DEXAMETHASONE [Concomitant]
     Active Substance: DEXAMETHASONE
     Route: 042
     Dates: start: 20210713, end: 20210715
  20. DEXAMETHASONE [Concomitant]
     Active Substance: DEXAMETHASONE
     Route: 042
     Dates: start: 20210728, end: 20210729
  21. DEXAMETHASONE [Concomitant]
     Active Substance: DEXAMETHASONE
     Route: 042
     Dates: start: 20210804, end: 20210806
  22. DEXAMETHASONE [Concomitant]
     Active Substance: DEXAMETHASONE
     Route: 042
     Dates: start: 20210723, end: 20210803
  23. DEXAMETHASONE [Concomitant]
     Active Substance: DEXAMETHASONE
     Route: 042
     Dates: start: 20210628, end: 20210630
  24. RABEPRAZOLE SODIUM [Concomitant]
     Active Substance: RABEPRAZOLE SODIUM
     Route: 042
     Dates: start: 20210612, end: 20210612
  25. PALONOSETRON [Concomitant]
     Active Substance: PALONOSETRON
     Indication: Vomiting
     Route: 042
     Dates: start: 20210612, end: 20210612
  26. PALONOSETRON [Concomitant]
     Active Substance: PALONOSETRON
     Indication: Nausea
     Route: 042
     Dates: start: 20210729, end: 20210730
  27. CELECOXIB [Concomitant]
     Active Substance: CELECOXIB
     Indication: Infusion related reaction
     Route: 048
     Dates: start: 20210611, end: 20210611
  28. POLYENE PHOSPHOLIPID CAPSULES (UNK INGREDIENTS) [Concomitant]
     Route: 048
     Dates: start: 20210617, end: 20210707
  29. BICYCLOL [Concomitant]
     Active Substance: BICYCLOL
     Route: 048
     Dates: start: 20210617, end: 20210707
  30. MAGNESIUM SULFATE [Concomitant]
     Active Substance: MAGNESIUM SULFATE
     Indication: Seizure
     Route: 042
     Dates: start: 20210612, end: 20210615
  31. MAGNESIUM SULFATE [Concomitant]
     Active Substance: MAGNESIUM SULFATE
     Route: 042
     Dates: start: 20210722, end: 20210722
  32. CALCIUM [Concomitant]
     Active Substance: CALCIUM
     Route: 042
     Dates: start: 20210612, end: 20210615
  33. DEXTROSE [Concomitant]
     Active Substance: DEXTROSE
     Route: 042
     Dates: start: 20210612, end: 20210615
  34. DEXTROSE [Concomitant]
     Active Substance: DEXTROSE
     Route: 042
     Dates: start: 20210709, end: 20210806
  35. CEFOPERAZONE\SULBACTAM [Concomitant]
     Active Substance: CEFOPERAZONE\SULBACTAM
     Indication: Infection
     Route: 042
     Dates: start: 20210709, end: 20210709
  36. CEFOPERAZONE\SULBACTAM [Concomitant]
     Active Substance: CEFOPERAZONE\SULBACTAM
     Route: 042
     Dates: start: 20210709
  37. CEFOPERAZONE\SULBACTAM [Concomitant]
     Active Substance: CEFOPERAZONE\SULBACTAM
     Route: 042
     Dates: start: 20210717, end: 20210717
  38. CEFOPERAZONE\SULBACTAM [Concomitant]
     Active Substance: CEFOPERAZONE\SULBACTAM
     Route: 042
     Dates: start: 20210803, end: 20210806
  39. CEFOPERAZONE\SULBACTAM [Concomitant]
     Active Substance: CEFOPERAZONE\SULBACTAM
     Route: 048
     Dates: start: 20210709, end: 20210709
  40. SODIUM BICARBONATE [Concomitant]
     Active Substance: SODIUM BICARBONATE
     Route: 042
     Dates: start: 20210707, end: 20210708
  41. SODIUM BICARBONATE [Concomitant]
     Active Substance: SODIUM BICARBONATE
     Route: 042
     Dates: start: 20210603, end: 20210603
  42. EPRAZOLE [OMEPRAZOLE] [Concomitant]
     Route: 042
     Dates: start: 20210708, end: 20210708
  43. EPRAZOLE [OMEPRAZOLE] [Concomitant]
     Route: 048
     Dates: start: 20210709, end: 20210709
  44. ALLOPURINOL [Concomitant]
     Active Substance: ALLOPURINOL
     Route: 048
     Dates: start: 20210708, end: 20210708
  45. ALLOPURINOL [Concomitant]
     Active Substance: ALLOPURINOL
     Route: 048
     Dates: start: 20210603, end: 20210603
  46. AMINOPHENAZONE [Concomitant]
     Active Substance: AMINOPHENAZONE
     Route: 030
     Dates: start: 20210709, end: 20210709
  47. TRAMADOL [Concomitant]
     Active Substance: TRAMADOL
     Indication: Abdominal pain
     Route: 030
     Dates: start: 20210709, end: 20210709
  48. TRAMADOL [Concomitant]
     Active Substance: TRAMADOL
     Route: 030
     Dates: start: 20210722, end: 20210722
  49. MORPHINE [Concomitant]
     Active Substance: MORPHINE
     Indication: Abdominal pain
     Route: 058
     Dates: start: 20210709, end: 20210709
  50. ANISODAMINE [Concomitant]
     Active Substance: ANISODAMINE
     Indication: Muscle spasms
     Route: 030
     Dates: start: 20210709, end: 20210709
  51. ANISODAMINE [Concomitant]
     Active Substance: ANISODAMINE
     Route: 030
     Dates: start: 20210722, end: 20210722
  52. PARECOXIB SODIUM [Concomitant]
     Active Substance: PARECOXIB SODIUM
     Indication: Abdominal pain
     Route: 042
     Dates: start: 20210709, end: 20210711
  53. PARECOXIB SODIUM [Concomitant]
     Active Substance: PARECOXIB SODIUM
     Route: 042
     Dates: start: 20210710, end: 20210711
  54. PARECOXIB SODIUM [Concomitant]
     Active Substance: PARECOXIB SODIUM
     Route: 042
     Dates: start: 20210717, end: 20210806
  55. PREDNISONE [Concomitant]
     Active Substance: PREDNISONE
     Indication: Prophylaxis
     Route: 048
     Dates: start: 20210709, end: 20210709
  56. PREDNISONE [Concomitant]
     Active Substance: PREDNISONE
     Indication: Infusion related reaction
  57. SODIUM CHLORIDE [Concomitant]
     Active Substance: SODIUM CHLORIDE
     Route: 042
     Dates: start: 20210709, end: 20210709
  58. SODIUM CHLORIDE [Concomitant]
     Active Substance: SODIUM CHLORIDE
     Route: 042
     Dates: start: 20210709, end: 20210806
  59. CALCIUM GLUCONATE [Concomitant]
     Active Substance: CALCIUM GLUCONATE
     Indication: Nutritional supplementation
     Route: 042
     Dates: start: 20210709, end: 20210806
  60. INSULIN NOS [Concomitant]
     Active Substance: INSULIN NOS
     Route: 042
     Dates: start: 20210709, end: 20210806
  61. ALBUMIN HUMAN [Concomitant]
     Active Substance: ALBUMIN HUMAN
     Indication: Hypoalbuminaemia
     Route: 042
     Dates: start: 20210709, end: 20210806
  62. DOPAMINE [Concomitant]
     Active Substance: DOPAMINE HYDROCHLORIDE
     Indication: Hypotension
     Route: 042
     Dates: start: 20210717, end: 20210717
  63. INSULIN NOS [Concomitant]
     Active Substance: INSULIN NOS
     Route: 055
     Dates: start: 20210718, end: 20210806
  64. ALUMINUM MAGNESIUM CARBONATE TABLETS [Concomitant]
     Route: 048
     Dates: start: 20210721, end: 20210806
  65. IMIPENEM [Concomitant]
     Active Substance: IMIPENEM
     Indication: Infection
     Route: 042
     Dates: start: 20210709, end: 20210803
  66. CILASTATIN SODIUM [Concomitant]
     Active Substance: CILASTATIN SODIUM
     Route: 042
     Dates: start: 20210709
  67. ILAPRAZOLE [Concomitant]
     Active Substance: ILAPRAZOLE
     Route: 042
     Dates: start: 20210709, end: 20210709
  68. ILAPRAZOLE [Concomitant]
     Active Substance: ILAPRAZOLE
     Route: 042
     Dates: start: 20210604, end: 20210604
  69. CEFUROXIME SAMMY (UNK INGREDIENTS) [Concomitant]
     Indication: Polyuria
     Route: 042
     Dates: start: 20210711
  70. LIDOCAINE [Concomitant]
     Active Substance: LIDOCAINE
     Indication: Anaesthesia
     Route: 042
     Dates: start: 20210723, end: 20210723
  71. BUFFERIN (CHINA) [Concomitant]
     Indication: Premedication
     Route: 048
     Dates: start: 20210708, end: 20210708
  72. BUFFERIN (CHINA) [Concomitant]
     Route: 048
     Dates: start: 20210611, end: 20210611
  73. BUFFERIN (CHINA) [Concomitant]
     Route: 048
     Dates: start: 20210604, end: 20210604
  74. BENDAMUSTINE [Concomitant]
     Active Substance: BENDAMUSTINE
     Dates: start: 20210729, end: 20210730
  75. NIFEDIPINE [Concomitant]
     Active Substance: NIFEDIPINE
     Indication: Hypertension
     Route: 048
     Dates: start: 20210712, end: 20210712
  76. CODEINE PHOSPHATE;PLATYCODON GRANDIFLORUS [Concomitant]
     Indication: Cough
     Route: 048
     Dates: start: 20210729, end: 20210731
  77. BENDAMUSTINE HYDROCHLORIDE [Concomitant]
     Active Substance: BENDAMUSTINE HYDROCHLORIDE
     Indication: Lymphoma
     Route: 042
     Dates: start: 20210729, end: 20210730
  78. RECOMBINANT HUMAN GRANULOCYTE COLONY STIMULATING FACTOR (UNK INGREDIEN [Concomitant]
     Indication: White blood cell count decreased
     Dosage: 150 UG
     Route: 058
     Dates: start: 20210731, end: 20210731
  79. RECOMBINANT HUMAN GRANULOCYTE COLONY STIMULATING FACTOR (UNK INGREDIEN [Concomitant]
     Indication: Neutrophil count decreased
     Dosage: 150 UG
     Route: 058
     Dates: start: 20210803, end: 20210806
  80. GLYCERIN [Concomitant]
     Active Substance: GLYCERIN
     Route: 061
     Dates: start: 20210803, end: 20210803
  81. GLYCERIN [Concomitant]
     Active Substance: GLYCERIN
     Route: 061
     Dates: start: 20210711, end: 20210806
  82. GLYCERIN [Concomitant]
     Active Substance: GLYCERIN
     Route: 061
     Dates: start: 20210727, end: 20210727
  83. LEVOTHYROXINE SODIUM [Concomitant]
     Active Substance: LEVOTHYROXINE SODIUM
     Indication: Hypothyroidism
     Dosage: 50 UG
     Route: 048
     Dates: start: 20210721, end: 20210806
  84. ILAPRAZOLE [Concomitant]
     Active Substance: ILAPRAZOLE
     Route: 042
     Dates: start: 20210709, end: 20210709
  85. ILAPRAZOLE [Concomitant]
     Active Substance: ILAPRAZOLE
     Route: 042
     Dates: start: 20210611, end: 20210611
  86. ILAPRAZOLE [Concomitant]
     Active Substance: ILAPRAZOLE
     Route: 042
     Dates: start: 20210708, end: 20210708
  87. PARECOXIB SODIUM [Concomitant]
     Active Substance: PARECOXIB SODIUM
     Indication: Abdominal pain
     Route: 042
     Dates: start: 20210707
  88. AMBROXOL HYDROCHLORIDE [Concomitant]
     Active Substance: AMBROXOL HYDROCHLORIDE
     Indication: Cough
     Route: 048
     Dates: start: 20210725, end: 20210725
  89. LANSOPRAZOLE [Concomitant]
     Active Substance: LANSOPRAZOLE
     Route: 042
     Dates: start: 20210729, end: 20210730
  90. OXYGEN [Concomitant]
     Active Substance: OXYGEN
     Indication: Hypoxia
     Route: 055
     Dates: start: 20210709, end: 20210803
  91. FUROSEMIDE [Concomitant]
     Active Substance: FUROSEMIDE
     Indication: Polyuria
     Route: 042
     Dates: start: 20210711, end: 20210806
  92. CEFOPERAZONE\SULBACTAM [Concomitant]
     Active Substance: CEFOPERAZONE\SULBACTAM
     Indication: Infection
     Route: 042
     Dates: start: 20210717, end: 20210717
  93. CEFOPERAZONE\SULBACTAM [Concomitant]
     Active Substance: CEFOPERAZONE\SULBACTAM
     Route: 042
     Dates: start: 20210709, end: 20210709
  94. INSULIN NOS [Concomitant]
     Active Substance: INSULIN NOS
     Route: 058
     Dates: start: 20210718, end: 20210806
  95. DEXTROSE\SODIUM CHLORIDE [Concomitant]
     Active Substance: DEXTROSE\SODIUM CHLORIDE
     Indication: Nutritional supplementation
     Route: 042
     Dates: start: 20210707, end: 20210707
  96. DEXTROSE\SODIUM CHLORIDE [Concomitant]
     Active Substance: DEXTROSE\SODIUM CHLORIDE
     Route: 042
     Dates: start: 20210709, end: 20210721
  97. DEXTROSE\SODIUM CHLORIDE [Concomitant]
     Active Substance: DEXTROSE\SODIUM CHLORIDE
     Route: 042
     Dates: start: 20210603, end: 20210603
  98. ZYVOX [Concomitant]
     Active Substance: LINEZOLID
     Indication: Infection
     Route: 042
     Dates: start: 20210709, end: 20210721
  99. TRAMADOL [Concomitant]
     Active Substance: TRAMADOL
     Indication: Abdominal pain
     Route: 030
     Dates: start: 20210722, end: 20210722

REACTIONS (4)
  - Peritonitis [Recovering/Resolving]
  - Pancreatitis [Recovering/Resolving]
  - Anaemia [Recovering/Resolving]
  - Cytokine release syndrome [Recovered/Resolved]

NARRATIVE: CASE EVENT DATE: 20210628
